FAERS Safety Report 5245816-7 (Version None)
Quarter: 2007Q1

REPORT INFORMATION
  Report Type: 
  Country: None (occurrence: None)
  Receive Date: 20070216
  Receipt Date: 20070208
  Transmission Date: 20070707
  Serious: Yes (Other)
  Sender: FDA-Public Use
  Company Number: 2006SP007481

PATIENT
  Age: 52 Year
  Sex: Female
  Weight: 111.1313 kg

DRUGS (13)
  1. PEG-INTON (PEGINTERFERON ALFA-2B) [Suspect]
     Indication: HEPATITIS C
     Dosage: 150 MCG; QW; SC
     Route: 058
     Dates: start: 20060929, end: 20061011
  2. RIBAVIRIN [Suspect]
     Indication: HEPATITIS C
     Dosage: 1400 MG; QD; PO
     Route: 048
     Dates: start: 20060929, end: 20061011
  3. BENICAR [Concomitant]
  4. XANAX [Concomitant]
  5. ZANAFLEX [Concomitant]
  6. ALLEGRA [Concomitant]
  7. PREMARIN [Concomitant]
  8. FLEXERIL [Concomitant]
  9. PHENERGAN HCL [Concomitant]
  10. PREVACID [Concomitant]
  11. ZANTAC [Concomitant]
  12. VERELAN [Concomitant]
  13. QUININE [Concomitant]

REACTIONS (27)
  - ABDOMINAL PAIN UPPER [None]
  - ASTHENIA [None]
  - CHEST PAIN [None]
  - COLD SWEAT [None]
  - CONDITION AGGRAVATED [None]
  - DEHYDRATION [None]
  - DIARRHOEA [None]
  - DIZZINESS [None]
  - DRY SKIN [None]
  - FALL [None]
  - FATIGUE [None]
  - FLUID INTAKE REDUCED [None]
  - HYPERHIDROSIS [None]
  - HYPOTENSION [None]
  - IMPAIRED WORK ABILITY [None]
  - INFLUENZA LIKE ILLNESS [None]
  - INSOMNIA [None]
  - PAIN [None]
  - PALLOR [None]
  - PRESYNCOPE [None]
  - PSORIASIS [None]
  - RASH [None]
  - RESTLESS LEGS SYNDROME [None]
  - SKIN DISCOLOURATION [None]
  - SLUGGISHNESS [None]
  - VISION BLURRED [None]
  - VOMITING [None]
